FAERS Safety Report 10366213 (Version 1)
Quarter: 2014Q3

REPORT INFORMATION
  Report Type: Spontaneous
  Country: US (occurrence: US)
  Receive Date: 20140806
  Receipt Date: 20140806
  Transmission Date: 20150326
  Serious: Yes (Hospitalization)
  Sender: FDA-Public Use
  Company Number: US-BAXTER-2014BAX044200

PATIENT
  Sex: Female

DRUGS (1)
  1. GAMMAGARD LIQUID [Suspect]
     Active Substance: HUMAN IMMUNOGLOBULIN G
     Indication: IMMUNE SYSTEM DISORDER
     Route: 065
     Dates: start: 2013, end: 2014

REACTIONS (5)
  - Oral disorder [Unknown]
  - Pneumonia [Unknown]
  - Adverse drug reaction [Unknown]
  - Malaise [Unknown]
  - Tooth loss [Unknown]

NARRATIVE: CASE EVENT DATE: 201312
